FAERS Safety Report 18766478 (Version 1)
Quarter: 2021Q1

REPORT INFORMATION
  Report Type: Spontaneous
  Country: PL (occurrence: PL)
  Receive Date: 20210121
  Receipt Date: 20210121
  Transmission Date: 20210419
  Serious: Yes (Other)
  Sender: FDA-Public Use
  Company Number: PL-REGENERON PHARMACEUTICALS, INC.-2021-14155

PATIENT

DRUGS (6)
  1. EYLEA [Suspect]
     Active Substance: AFLIBERCEPT
     Indication: NEOVASCULAR AGE-RELATED MACULAR DEGENERATION
     Route: 065
  2. AVASTIN [Suspect]
     Active Substance: BEVACIZUMAB
     Indication: NEOVASCULAR AGE-RELATED MACULAR DEGENERATION
     Route: 065
  3. LUCENTIS [Suspect]
     Active Substance: RANIBIZUMAB
     Indication: NEOVASCULAR AGE-RELATED MACULAR DEGENERATION
     Route: 065
  4. BROLUCIZUMAB. [Suspect]
     Active Substance: BROLUCIZUMAB
     Dosage: UNK
     Route: 065
     Dates: start: 20200918
  5. BROLUCIZUMAB. [Suspect]
     Active Substance: BROLUCIZUMAB
     Dosage: UNK
     Route: 065
     Dates: start: 20201023
  6. BROLUCIZUMAB. [Suspect]
     Active Substance: BROLUCIZUMAB
     Indication: VISUAL ACUITY REDUCED
     Dosage: UNK
     Route: 065
     Dates: start: 20200821

REACTIONS (3)
  - Visual impairment [Unknown]
  - Visual acuity reduced [Recovering/Resolving]
  - Retinal oedema [Recovering/Resolving]
